FAERS Safety Report 21334125 (Version 2)
Quarter: 2022Q3

REPORT INFORMATION
  Report Type: Spontaneous
  Country: IT (occurrence: IT)
  Receive Date: 20220914
  Receipt Date: 20220918
  Transmission Date: 20221027
  Serious: Yes (Other)
  Sender: FDA-Public Use
  Company Number: IT-NOVARTISPH-NVSC2022IT204347

PATIENT
  Age: 20 Year
  Sex: Male

DRUGS (27)
  1. CLOZAPINE [Suspect]
     Active Substance: CLOZAPINE
     Indication: Intellectual disability
     Dosage: UNK
     Route: 065
  2. CLOZAPINE [Suspect]
     Active Substance: CLOZAPINE
     Indication: Schizophrenia
  3. ARIPIPRAZOLE [Suspect]
     Active Substance: ARIPIPRAZOLE
     Indication: Intellectual disability
     Dosage: UNK
     Route: 065
  4. ARIPIPRAZOLE [Suspect]
     Active Substance: ARIPIPRAZOLE
     Indication: Schizophrenia
  5. QUETIAPINE [Suspect]
     Active Substance: QUETIAPINE
     Indication: Intellectual disability
     Dosage: UNK
     Route: 065
  6. QUETIAPINE [Suspect]
     Active Substance: QUETIAPINE
     Indication: Schizophrenia
  7. OLANZAPINE [Suspect]
     Active Substance: OLANZAPINE
     Indication: Intellectual disability
     Dosage: UNK
     Route: 065
  8. RISPERIDONE [Suspect]
     Active Substance: RISPERIDONE
     Indication: Intellectual disability
     Dosage: UNK
     Route: 065
  9. RISPERIDONE [Suspect]
     Active Substance: RISPERIDONE
     Indication: Schizophrenia
  10. CLOTHIAPINE [Suspect]
     Active Substance: CLOTHIAPINE
     Indication: Intellectual disability
     Dosage: UNK
     Route: 065
  11. CLOTHIAPINE [Suspect]
     Active Substance: CLOTHIAPINE
     Indication: Schizophrenia
  12. LEVOMEPROMAZINE [Suspect]
     Active Substance: LEVOMEPROMAZINE
     Indication: Intellectual disability
     Dosage: UNK
     Route: 065
  13. LEVOMEPROMAZINE [Suspect]
     Active Substance: LEVOMEPROMAZINE
     Indication: Schizophrenia
  14. DELORAZEPAM [Concomitant]
     Active Substance: DELORAZEPAM
     Indication: Intellectual disability
     Dosage: UNK
     Route: 065
  15. DELORAZEPAM [Concomitant]
     Active Substance: DELORAZEPAM
     Indication: Schizophrenia
  16. TETRABENAZINE [Concomitant]
     Active Substance: TETRABENAZINE
     Indication: Intellectual disability
     Dosage: UNK
     Route: 065
  17. TETRABENAZINE [Concomitant]
     Active Substance: TETRABENAZINE
     Indication: Schizophrenia
  18. TOPIRAMATE [Concomitant]
     Active Substance: TOPIRAMATE
     Indication: Intellectual disability
     Dosage: UNK
     Route: 065
  19. TOPIRAMATE [Concomitant]
     Active Substance: TOPIRAMATE
     Indication: Schizophrenia
  20. FLUVOXAMINE [Concomitant]
     Active Substance: FLUVOXAMINE
     Indication: Intellectual disability
     Dosage: UNK
     Route: 065
  21. FLUVOXAMINE [Concomitant]
     Active Substance: FLUVOXAMINE
     Indication: Schizophrenia
  22. LAMOTRIGINE [Concomitant]
     Active Substance: LAMOTRIGINE
     Indication: Intellectual disability
     Dosage: UNK
     Route: 065
  23. LAMOTRIGINE [Concomitant]
     Active Substance: LAMOTRIGINE
     Indication: Schizophrenia
  24. CLONAZEPAM [Concomitant]
     Active Substance: CLONAZEPAM
     Indication: Intellectual disability
     Dosage: UNK
     Route: 065
  25. CLONAZEPAM [Concomitant]
     Active Substance: CLONAZEPAM
     Indication: Schizophrenia
  26. PAROXETINE [Concomitant]
     Active Substance: PAROXETINE
     Indication: Intellectual disability
     Dosage: UNK
     Route: 065
  27. PAROXETINE [Concomitant]
     Active Substance: PAROXETINE
     Indication: Schizophrenia

REACTIONS (1)
  - Dystonia [Unknown]
